FAERS Safety Report 6569847-X (Version None)
Quarter: 2010Q1

REPORT INFORMATION
  Report Type: 
  Country: None (occurrence: None)
  Receive Date: 20100202
  Receipt Date: 20100202
  Transmission Date: 20100710
  Serious: No
  Sender: FDA-Public Use
  Company Number: None

PATIENT
  Age: 33 Year
  Sex: Female
  Weight: 90 kg

DRUGS (1)
  1. VALPROATE SODIUM [Suspect]
     Indication: CONVULSION
     Dosage: 500MG Q8H IV 9 DOSES
     Route: 042
     Dates: start: 20100120, end: 20100123

REACTIONS (2)
  - AMMONIA INCREASED [None]
  - UNEVALUABLE EVENT [None]
